FAERS Safety Report 4665408-8 (Version None)
Quarter: 2005Q2

REPORT INFORMATION
  Report Type: 
  Country: None (occurrence: None)
  Receive Date: 20050517
  Receipt Date: 20050517
  Transmission Date: 20051028
  Serious: Yes (Hospitalization)
  Sender: FDA-Public Use
  Company Number: None

PATIENT
  Age: 52 Year
  Sex: Female

DRUGS (4)
  1. TAMOXIFEN [Suspect]
     Indication: BREAST CANCER
     Dosage: QD CONTINUES
  2. TAMOXIFEN [Suspect]
     Indication: BREAST CANCER IN SITU
     Dosage: QD CONTINUES
  3. ANASTRO [Suspect]
     Indication: BREAST CANCER
     Dosage: QD CONTINUES
  4. ANASTRO [Suspect]
     Indication: BREAST CANCER IN SITU
     Dosage: QD CONTINUES

REACTIONS (2)
  - ACTIVITIES OF DAILY LIVING IMPAIRED [None]
  - PERICARDITIS [None]
